FAERS Safety Report 14742833 (Version 1)
Quarter: 2018Q2

REPORT INFORMATION
  Report Type: Report from Study
  Country: None (occurrence: US)
  Receive Date: 20180410
  Receipt Date: 20180410
  Transmission Date: 20180711
  Serious: Yes (Other)
  Sender: FDA-Public Use
  Company Number: US-ABBVIE-18P-163-2316663-00

PATIENT
  Sex: Male

DRUGS (4)
  1. DEFEROXAMINE [Concomitant]
     Active Substance: DEFEROXAMINE\DEFEROXAMINE MESYLATE
     Indication: TRANSFUSION
     Dosage: EVERY OTHER WEEK FOR A 40 HOUR INFUSION, THEN A WEEK OFF AND THEN ANOTHER 40 HOURS
     Route: 042
     Dates: start: 201712
  2. DEFEROXAMINE [Concomitant]
     Active Substance: DEFEROXAMINE\DEFEROXAMINE MESYLATE
     Indication: BLOOD IRON INCREASED
  3. VENCLEXTA [Suspect]
     Active Substance: VENETOCLAX
     Indication: PRODUCT USED FOR UNKNOWN INDICATION
     Route: 048
     Dates: start: 20171226
  4. VIDAZA [Concomitant]
     Active Substance: AZACITIDINE
     Indication: PRODUCT USED FOR UNKNOWN INDICATION
     Dosage: DAILY FOR 7 DAYS AND THEN REPEATS EVERY 28 DAYS
     Route: 050

REACTIONS (6)
  - Diarrhoea [Recovered/Resolved]
  - Parasitic gastroenteritis [Recovered/Resolved]
  - Irritability [Recovered/Resolved]
  - Groin pain [Recovered/Resolved]
  - Nephrolithiasis [Recovered/Resolved]
  - Muscle spasms [Recovered/Resolved]

NARRATIVE: CASE EVENT DATE: 2018
